FAERS Safety Report 23924787 (Version 2)
Quarter: 2024Q2

REPORT INFORMATION
  Report Type: Spontaneous
  Country: US (occurrence: US)
  Receive Date: 20240531
  Receipt Date: 20240610
  Transmission Date: 20240716
  Serious: Yes (Hospitalization, Other)
  Sender: FDA-Public Use
  Company Number: US-MYLANLABS-2024M1048671

PATIENT
  Sex: Female

DRUGS (10)
  1. METOPROLOL TARTRATE [Suspect]
     Active Substance: METOPROLOL TARTRATE
     Indication: Sinus tachycardia
     Dosage: UNK, QD (1/2 25 MILLIGRAM)
     Route: 065
  2. VANCOMYCIN HYDROCHLORIDE [Suspect]
     Active Substance: VANCOMYCIN HYDROCHLORIDE
     Indication: Meningitis
     Dosage: UNK (REDUCED RATE)
     Route: 065
     Dates: start: 20240421, end: 20240422
  3. MEDROXYPROGESTERONE ACETATE [Suspect]
     Active Substance: MEDROXYPROGESTERONE ACETATE
     Indication: Product used for unknown indication
     Dosage: 150 MILLIGRAM (EVERY 3 MONTHS)
     Route: 030
     Dates: start: 20230823, end: 20240308
  4. EFFEXOR [Concomitant]
     Active Substance: VENLAFAXINE HYDROCHLORIDE
     Indication: Depression
     Dosage: 250 MILLIGRAM, QD (EVERY MORNING ONCE DAILY)
     Route: 065
  5. PRAVASTATIN [Concomitant]
     Active Substance: PRAVASTATIN
     Indication: Blood cholesterol increased
     Dosage: 20 MILLIGRAM, QD
     Route: 065
  6. LAMICTAL [Concomitant]
     Active Substance: LAMOTRIGINE
     Indication: Affective disorder
     Dosage: 100 MILLIGRAM, QD (ONCE DAILY IN MORNING)
     Route: 065
  7. FLONASE [Concomitant]
     Active Substance: FLUTICASONE PROPIONATE
     Indication: Hypersensitivity
     Dosage: UNK, QD (2 PUFFD, ONCE DAILY IN MORNING)
     Route: 065
  8. CLARITIN [Concomitant]
     Active Substance: LORATADINE
     Indication: Hypersensitivity
     Dosage: 10 MILLIGRAM, QD(EVERY MORNING, ONCE A DAY)
     Route: 065
  9. MIRALAX [Concomitant]
     Active Substance: POLYETHYLENE GLYCOL 3350
     Indication: Constipation
     Dosage: UNK, QD (1 CAP)
     Route: 065
  10. OMEPRAZOLE [Concomitant]
     Active Substance: DONEPEZIL HYDROCHLORIDE\OMEPRAZOLE\OMEPRAZOLE MAGNESIUM
     Indication: Gastrooesophageal reflux disease
     Dosage: 40 MILLIGRAM, QD (EVERY MORNING ONCE DAILY)
     Route: 065

REACTIONS (5)
  - Migraine [Not Recovered/Not Resolved]
  - Suicidal ideation [Unknown]
  - Vancomycin infusion reaction [Recovered/Resolved]
  - Hallucination, auditory [Unknown]
  - Hyperacusis [Unknown]

NARRATIVE: CASE EVENT DATE: 20231223
